FAERS Safety Report 5423630-7 (Version None)
Quarter: 2007Q3

REPORT INFORMATION
  Report Type: 
  Country: None (occurrence: None)
  Receive Date: 20070727
  Receipt Date: 20070524
  Transmission Date: 20080115
  Serious: Yes (Other)
  Sender: FDA-Public Use
  Company Number: USEN-73HRJB

PATIENT
  Sex: Female

DRUGS (2)
  1. DURAPREP [Suspect]
     Indication: PREOPERATIVE CARE
     Dosage: 26 ML, TOPICAL, SING;LE APPLICATION
     Route: 061
  2. IODINE TAPE [Concomitant]

REACTIONS (2)
  - BLISTER [None]
  - SKIN REACTION [None]
